FAERS Safety Report 4678098-5 (Version None)
Quarter: 2005Q2

REPORT INFORMATION
  Report Type: 
  Country: None (occurrence: None)
  Receive Date: 20050531
  Receipt Date: 20050531
  Transmission Date: 20051028
  Serious: Yes (Hospitalization, Other)
  Sender: FDA-Public Use
  Company Number: None

PATIENT
  Age: 57 Year
  Sex: Female
  Weight: 89.4 kg

DRUGS (1)
  1. TAXOL [Suspect]

REACTIONS (3)
  - MECHANICAL COMPLICATION OF IMPLANT [None]
  - PROCEDURAL COMPLICATION [None]
  - STENT REMOVAL [None]
